FAERS Safety Report 14355237 (Version 1)
Quarter: 2018Q1

REPORT INFORMATION
  Report Type: Spontaneous
  Country: FR (occurrence: FR)
  Receive Date: 20180105
  Receipt Date: 20180105
  Transmission Date: 20180509
  Serious: Yes (Other)
  Sender: FDA-Public Use
  Company Number: FR-PFIZER INC-2017556025

PATIENT
  Age: 89 Year
  Sex: Female

DRUGS (16)
  1. BISOPROLOL [Concomitant]
     Active Substance: BISOPROLOL
  2. DUROGESIC [Concomitant]
     Active Substance: FENTANYL
  3. AMLOR [Concomitant]
     Active Substance: AMLODIPINE BESYLATE
  4. CANDESARTAN. [Concomitant]
     Active Substance: CANDESARTAN
  5. ZYVOXID [Suspect]
     Active Substance: LINEZOLID
     Indication: INFECTION
     Dosage: 1200 MG, 1X/DAY
     Route: 048
     Dates: start: 20171016, end: 20171030
  6. DIFFU-K [Concomitant]
     Active Substance: POTASSIUM CHLORIDE
  7. LEVEMIR [Concomitant]
     Active Substance: INSULIN DETEMIR
  8. MOVICOL [Concomitant]
     Active Substance: POLYETHYLENE GLYCOL 3350\POTASSIUM CHLORIDE\SODIUM BICARBONATE\SODIUM CHLORIDE
  9. LANSOPRAZOLE. [Concomitant]
     Active Substance: LANSOPRAZOLE
  10. PRIMPERAN [Concomitant]
     Active Substance: METOCLOPRAMIDE HYDROCHLORIDE
  11. REPAGLINIDE. [Concomitant]
     Active Substance: REPAGLINIDE
  12. LASILIX /00032601/ [Concomitant]
     Active Substance: FUROSEMIDE
  13. CARDENSIEL [Concomitant]
     Active Substance: BISOPROLOL FUMARATE
  14. SERESTA [Concomitant]
     Active Substance: OXAZEPAM
  15. NOVORAPID [Concomitant]
     Active Substance: INSULIN ASPART
  16. OXYNORMORO [Concomitant]
     Active Substance: OXYCODONE HYDROCHLORIDE
     Dosage: UNK, 1X/DAY

REACTIONS (1)
  - Cholestasis [Recovered/Resolved]

NARRATIVE: CASE EVENT DATE: 20171025
